FAERS Safety Report 4807983-6 (Version None)
Quarter: 2005Q4

REPORT INFORMATION
  Report Type: 
  Country: None (occurrence: None)
  Receive Date: 20051020
  Receipt Date: 20051004
  Transmission Date: 20060501
  Serious: Yes (Hospitalization)
  Sender: FDA-Public Use
  Company Number: ST-2005-008640

PATIENT
  Age: 62 Year
  Sex: Male

DRUGS (4)
  1. OLMETEC [Suspect]
     Indication: ESSENTIAL HYPERTENSION
     Dosage: 20 MG QD PO
     Route: 048
     Dates: start: 20050519, end: 20050603
  2. ASPIRIN [Concomitant]
  3. CONIEL [Concomitant]
  4. NU LOTAN [Concomitant]

REACTIONS (1)
  - CEREBRAL INFARCTION [None]
